FAERS Safety Report 10705104 (Version 4)
Quarter: 2015Q2

REPORT INFORMATION
  Report Type: Spontaneous
  Country: US (occurrence: US)
  Receive Date: 20150112
  Receipt Date: 20150421
  Transmission Date: 20150821
  Serious: Yes (Death, Hospitalization, Other)
  Sender: FDA-Public Use
  Company Number: US-PFIZER INC-2015009839

PATIENT
  Age: 85 Year
  Sex: Female

DRUGS (2)
  1. REVATIO [Suspect]
     Active Substance: SILDENAFIL CITRATE
     Indication: PULMONARY HYPERTENSION
     Dosage: 25 MG, TWICE A DAY (BID)
  2. TRACLEER [Concomitant]
     Active Substance: BOSENTAN\BOSENTAN MONOHYDRATE
     Dosage: UNK

REACTIONS (5)
  - Right ventricular failure [Fatal]
  - Cardiac valve disease [Unknown]
  - Fall [Unknown]
  - Cardiorenal syndrome [Fatal]
  - Limb injury [Unknown]

NARRATIVE: CASE EVENT DATE: 201308
